FAERS Safety Report 21086277 (Version 1)
Quarter: 2022Q3

REPORT INFORMATION
  Report Type: Report from Study
  Country: NL (occurrence: NL)
  Receive Date: 20220715
  Receipt Date: 20220715
  Transmission Date: 20221027
  Serious: Yes (Death)
  Sender: FDA-Public Use
  Company Number: NL-ABBVIE-22K-114-4237731-00

PATIENT
  Sex: Female

DRUGS (2)
  1. CARBIDOPA\LEVODOPA [Suspect]
     Active Substance: CARBIDOPA\LEVODOPA
     Indication: Parkinson^s disease
     Route: 050
     Dates: start: 20150205
  2. CARBIDOPA\LEVODOPA [Suspect]
     Active Substance: CARBIDOPA\LEVODOPA
     Dosage: MD 12.5 ML CD 4.8 ML/H ED 2.0 ML
     Route: 050

REACTIONS (9)
  - Death [Fatal]
  - Cognitive disorder [Not Recovered/Not Resolved]
  - Device issue [Recovered/Resolved]
  - Moaning [Not Recovered/Not Resolved]
  - On and off phenomenon [Unknown]
  - Dyskinesia [Not Recovered/Not Resolved]
  - Hallucination [Unknown]
  - Anxiety [Not Recovered/Not Resolved]
  - Bradykinesia [Not Recovered/Not Resolved]

NARRATIVE: CASE EVENT DATE: 20220101
